FAERS Safety Report 20215789 (Version 2)
Quarter: 2022Q1

REPORT INFORMATION
  Report Type: Spontaneous
  Country: US (occurrence: US)
  Receive Date: 20211222
  Receipt Date: 20220120
  Transmission Date: 20220423
  Serious: Yes (Other)
  Sender: FDA-Public Use
  Company Number: US-009507513-2112USA007205

PATIENT
  Sex: Male

DRUGS (1)
  1. JANUVIA [Suspect]
     Active Substance: SITAGLIPTIN PHOSPHATE
     Dosage: TAKE 1 TABLET(S) EVERY DAY BY ORAL ROUTE IN THE MORNING FOR 90 DAYS
     Route: 048

REACTIONS (3)
  - Diabetes mellitus [Unknown]
  - Hypertriglyceridaemia [Unknown]
  - Blood pressure increased [Unknown]
